FAERS Safety Report 5678554-7 (Version None)
Quarter: 2008Q1

REPORT INFORMATION
  Report Type: 
  Country: None (occurrence: None)
  Receive Date: 20080325
  Receipt Date: 20080314
  Transmission Date: 20080703
  Serious: Yes (Other)
  Sender: FDA-Public Use
  Company Number: GB-JNJFOC-20080303889

PATIENT

DRUGS (4)
  1. INFLIXIMAB [Suspect]
     Route: 042
  2. INFLIXIMAB [Suspect]
     Route: 042
  3. INFLIXIMAB [Suspect]
     Indication: CROHN'S DISEASE
     Route: 042
  4. ASACOL [Concomitant]
     Indication: CROHN'S DISEASE

REACTIONS (3)
  - BLISTER [None]
  - PRURITUS [None]
  - RASH MACULO-PAPULAR [None]
